FAERS Safety Report 24651418 (Version 2)
Quarter: 2024Q4

REPORT INFORMATION
  Report Type: Spontaneous
  Country: US (occurrence: US)
  Receive Date: 20241122
  Receipt Date: 20241127
  Transmission Date: 20250115
  Serious: No
  Sender: LEO PHARM
  Company Number: US-LEO Pharma-375309

PATIENT
  Age: 48 Year
  Sex: Female

DRUGS (1)
  1. ADBRY [Suspect]
     Active Substance: TRALOKINUMAB-LDRM
     Indication: Dermatitis
     Dates: start: 202403

REACTIONS (4)
  - Rash [Unknown]
  - Hypertension [Unknown]
  - Papule [Unknown]
  - Dermatitis [Recovering/Resolving]
